FAERS Safety Report 7019649-5 (Version None)
Quarter: 2010Q3

REPORT INFORMATION
  Report Type: 
  Country: None (occurrence: None)
  Receive Date: 20100928
  Receipt Date: 20100920
  Transmission Date: 20110219
  Serious: Yes (Other)
  Sender: FDA-Public Use
  Company Number: PHHY2010US52177

PATIENT
  Sex: Female

DRUGS (10)
  1. RECLAST [Suspect]
     Dosage: UNK
     Dates: start: 20100615
  2. TYLENOL [Concomitant]
  3. DEMEROL [Concomitant]
  4. CALCIUM [Concomitant]
     Dosage: 6X A DAY
  5. MULTI-VITAMINS [Concomitant]
  6. AQUADEK [Concomitant]
  7. SYNTHROID [Concomitant]
  8. VIVELLE-DOT [Concomitant]
  9. MIRALAX [Concomitant]
  10. FINNEGAM [Concomitant]

REACTIONS (9)
  - ARTHRALGIA [None]
  - CONTUSION [None]
  - DRY SKIN [None]
  - HAEMORRHAGE SUBCUTANEOUS [None]
  - INFLUENZA [None]
  - PAIN [None]
  - ROTATOR CUFF REPAIR [None]
  - ROTATOR CUFF SYNDROME [None]
  - VITAMIN K DEFICIENCY [None]
